APPROVED DRUG PRODUCT: DEXLANSOPRAZOLE
Active Ingredient: DEXLANSOPRAZOLE
Strength: 60MG
Dosage Form/Route: CAPSULE, DELAYED RELEASE;ORAL
Application: A219115 | Product #002 | TE Code: AB
Applicant: ALEMBIC PHARMACEUTICALS LTD
Approved: Nov 12, 2025 | RLD: No | RS: No | Type: RX